FAERS Safety Report 6478406-9 (Version None)
Quarter: 2009Q4

REPORT INFORMATION
  Report Type: 
  Country: None (occurrence: None)
  Receive Date: 20091207
  Receipt Date: 20091202
  Transmission Date: 20100525
  Serious: Yes (Death)
  Sender: FDA-Public Use
  Company Number: PHHY2009JP53356

PATIENT
  Sex: Female

DRUGS (1)
  1. GLEEVEC [Suspect]
     Indication: ACUTE BIPHENOTYPIC LEUKAEMIA
     Route: 048

REACTIONS (4)
  - ECTHYMA [None]
  - NEUTROPHIL COUNT DECREASED [None]
  - PERIORBITAL OEDEMA [None]
  - SEPTIC SHOCK [None]
